FAERS Safety Report 13346060 (Version 2)
Quarter: 2017Q2

REPORT INFORMATION
  Report Type: Report from Study
  Country: US (occurrence: US)
  Receive Date: 20170317
  Receipt Date: 20170621
  Transmission Date: 20170830
  Serious: No
  Sender: FDA-Public Use
  Company Number: US-JNJFOC-20170315768

PATIENT
  Sex: Male
  Weight: 117.94 kg

DRUGS (2)
  1. STELARA [Suspect]
     Active Substance: USTEKINUMAB
     Indication: PSORIASIS
     Route: 058
     Dates: start: 2016
  2. STELARA [Suspect]
     Active Substance: USTEKINUMAB
     Indication: PSORIASIS
     Route: 058
     Dates: start: 2013, end: 2015

REACTIONS (3)
  - Drug ineffective [Unknown]
  - Alanine aminotransferase increased [Unknown]
  - Haemochromatosis [Unknown]

NARRATIVE: CASE EVENT DATE: 2015
